FAERS Safety Report 10770060 (Version 2)
Quarter: 2015Q1

REPORT INFORMATION
  Report Type: Spontaneous
  Country: US (occurrence: US)
  Receive Date: 20150206
  Receipt Date: 20150206
  Transmission Date: 20150721
  Serious: Yes (Other)
  Sender: FDA-Public Use
  Company Number: US-SA-2015SA014404

PATIENT
  Age: 84 Year
  Sex: Male

DRUGS (1)
  1. RENVELA [Suspect]
     Active Substance: SEVELAMER CARBONATE
     Indication: CHRONIC KIDNEY DISEASE
     Dosage: RENVELA 800 MG; TAKES WITH HIS TWICE DAILY MEALS
     Route: 065

REACTIONS (3)
  - Hyperphosphataemia [Unknown]
  - Decreased appetite [Unknown]
  - Chronic kidney disease [Unknown]
